FAERS Safety Report 20048905 (Version 1)
Quarter: 2021Q4

REPORT INFORMATION
  Report Type: Report from Study
  Country: GB (occurrence: GB)
  Receive Date: 20211109
  Receipt Date: 20211109
  Transmission Date: 20220303
  Serious: Yes (Death)
  Sender: FDA-Public Use
  Company Number: GB-PFIZER INC-202101507845

PATIENT
  Sex: Female

DRUGS (2)
  1. DOXORUBICIN HYDROCHLORIDE [Suspect]
     Active Substance: DOXORUBICIN HYDROCHLORIDE
     Indication: Neoplasm
     Dosage: 50 MG/M2 OR 40 MG/M2, EVERY 3 WEEKS
     Route: 040
  2. LURBINECTEDIN [Concomitant]
     Active Substance: LURBINECTEDIN
     Indication: Neoplasm
     Dosage: 3.0/ 3.5/ 4.0/ 5.0 MG OR 2.0 MG/M2, INTRAVENOUSLY OVER 1 HOUR ON DAY 1 EVERY 3 WEEKS
     Route: 042

REACTIONS (2)
  - Second primary malignancy [Fatal]
  - Acute monocytic leukaemia [Fatal]
